FAERS Safety Report 20661903 (Version 1)
Quarter: 2022Q2

REPORT INFORMATION
  Report Type: Spontaneous
  Country: NL (occurrence: NL)
  Receive Date: 20220401
  Receipt Date: 20220401
  Transmission Date: 20220721
  Serious: Yes (Death)
  Sender: FDA-Public Use
  Company Number: None

PATIENT
  Age: 69 Year
  Sex: Male
  Weight: 65.3 kg

DRUGS (15)
  1. MORPHINE [Suspect]
     Active Substance: MORPHINE
     Indication: Product used for unknown indication
     Dosage: UNIT DOSE: 2.5 MG ONCE,  INJVLST, FORM STRENGTH: 10MG/ML / BRAND NAME NOT SPECIFIED, THERAPY END DAT
     Route: 058
     Dates: start: 20211219
  2. OXAZEPAM [Suspect]
     Active Substance: OXAZEPAM
     Indication: Restlessness
     Dosage: 10 MILLIGRAM DAILY; 1 PER DAY 1 PIECE FOR THE NIGHT, FORM STRENGTH: 10MG / BRAND NAME NOT SPECIFIED,
     Dates: start: 20211220
  3. PANTOPRAZOLE SODIUM [Concomitant]
     Active Substance: PANTOPRAZOLE SODIUM
     Dosage: FORM STRENGTH: 20MG / BRAND NAME NOT SPECIFIED, THERAPY START DATE AND END DATE: ASKU
  4. PROPRANOLOL [Concomitant]
     Active Substance: PROPRANOLOL HYDROCHLORIDE
     Dosage: FORM STRENGTH: 10MG / BRAND NAME NOT SPECIFIED, THERAPY START DATE AND END DATE: ASKU
  5. PRAVASTATIN [Concomitant]
     Active Substance: PRAVASTATIN
     Dosage: FORM STRENGTH: 20MG / BRAND NAME NOT SPECIFIED, THERAPY START DATE AND END DATE: ASKU
  6. ENTECAVIR [Concomitant]
     Active Substance: ENTECAVIR
     Dosage: FORM STRENGTH: 0.5MG / BRAND NAME NOT SPECIFIED, THERAPY START DATE AND END DATE: ASKU
  7. PREDNISOLONE [Concomitant]
     Active Substance: PREDNISOLONE
     Dosage: FORM STRENGTH: 30MG / BRAND NAME NOT SPECIFIED, THERAPY START DATE AND END DATE: ASKU
  8. CHOLECALCIFEROL [Concomitant]
     Active Substance: CHOLECALCIFEROL
     Dosage: FORM STRENGTH: 800 UNITS / BRAND NAME NOT SPECIFIED, THERAPY START DATE AND END DATE: ASKU
  9. NADROPARIN CALCIUM [Concomitant]
     Active Substance: NADROPARIN CALCIUM
     Dosage: INJECTION FLUID, FORM STRENGTH: 9500 IU/ML,  INJVLST 2850IE/0.3ML (9500IE/ML) WWSP, THERAPY START DA
  10. AMLODIPINE [Concomitant]
     Active Substance: AMLODIPINE BESYLATE
     Dosage: FORM STRENGTH: 5MG / BRAND NAME NOT SPECIFIED, THERAPY START DATE AND END DATE: ASKU
  11. METFORMIN HYDROCHLORIDE [Concomitant]
     Active Substance: METFORMIN HYDROCHLORIDE
     Dosage: FORM STRENGTH: 500MG / BRAND NAME NOT SPECIFIED, THERAPY START DATE AND END DATE: ASKU
  12. ALFUZOSIN HYDROCHLORIDE [Concomitant]
     Active Substance: ALFUZOSIN HYDROCHLORIDE
     Dosage: FORM STRENGTH: 10MG / BRAND NAME NOT SPECIFIED, THERAPY START DATE AND END DATE: ASKU
  13. ASPIRIN [Concomitant]
     Active Substance: ASPIRIN
     Dosage: FORM STRENGTH: 80MG / BRAND NAME NOT SPECIFIED, THERAPY START DATE AND END DATE: ASKU
  14. ALBUTEROL\IPRATROPIUM [Concomitant]
     Active Substance: ALBUTEROL\IPRATROPIUM
     Dosage: VST 1/0.2MG/ML / BRAND NAME NOT SPECIFIED, THERAPY START DATE AND END DATE: ASKU
  15. LISINOPRIL [Concomitant]
     Active Substance: LISINOPRIL
     Dosage: FORM STRENGTH: 5MG / BRAND NAME NOT SPECIFIED, THERAPY START DATE AND END DATE: ASKU

REACTIONS (1)
  - Hypercapnia [Fatal]

NARRATIVE: CASE EVENT DATE: 20211223
